FAERS Safety Report 9572955 (Version 1)
Quarter: 2013Q4

REPORT INFORMATION
  Report Type: Spontaneous
  Country: US (occurrence: US)
  Receive Date: 20131001
  Receipt Date: 20131001
  Transmission Date: 20140711
  Serious: No
  Sender: FDA-Public Use
  Company Number: US-BIOGENIDEC-2013BI069022

PATIENT
  Age: 66 Year
  Sex: Female

DRUGS (5)
  1. TECFIDERA [Suspect]
     Indication: PRODUCT USED FOR UNKNOWN INDICATION
     Dates: start: 20130702
  2. XANAX [Concomitant]
  3. PAXIL [Concomitant]
  4. GABAPENTIN [Concomitant]
  5. NARATRIPTAN HCL [Concomitant]

REACTIONS (4)
  - Dizziness [Unknown]
  - Nausea [Unknown]
  - Flushing [Unknown]
  - Rash [Unknown]
